FAERS Safety Report 9926029 (Version 2)
Quarter: 2014Q3

REPORT INFORMATION
  Report Type: Report from Study
  Country: BR (occurrence: BR)
  Receive Date: 20140226
  Receipt Date: 20140821
  Transmission Date: 20150326
  Serious: Yes (Other)
  Sender: FDA-Public Use
  Company Number: BR-ABBVIE-14P-020-1204962-00

PATIENT
  Sex: Female

DRUGS (4)
  1. CELEBRA [Concomitant]
     Active Substance: CELECOXIB
     Indication: PAIN
  2. HUMIRA [Suspect]
     Active Substance: ADALIMUMAB
     Route: 058
     Dates: end: 2014
  3. CALCORT [Concomitant]
     Active Substance: DEFLAZACORT
     Indication: RHEUMATOID ARTHRITIS
  4. HUMIRA [Suspect]
     Active Substance: ADALIMUMAB
     Indication: RHEUMATOID ARTHRITIS
     Route: 058
     Dates: start: 2010, end: 2013

REACTIONS (3)
  - Osteoarthritis [Unknown]
  - Drug ineffective [Unknown]
  - Arthropathy [Unknown]
